FAERS Safety Report 17392476 (Version 1)
Quarter: 2020Q1

REPORT INFORMATION
  Report Type: Other
  Country: DE (occurrence: DE)
  Receive Date: 20200207
  Receipt Date: 20200207
  Transmission Date: 20200409
  Serious: Yes (Other)
  Sender: FDA-Public Use
  Company Number: DE-GLENMARK PHARMACEUTICALS-2020GMK045832

PATIENT

DRUGS (5)
  1. EZETIMIBE. [Suspect]
     Active Substance: EZETIMIBE
     Indication: LIPID METABOLISM DISORDER
  2. ATORVASTATIN [Suspect]
     Active Substance: ATORVASTATIN
     Indication: TYPE IIA HYPERLIPIDAEMIA
     Dosage: 20 MG, UNK
     Route: 065
     Dates: start: 2018
  3. EZETIMIBE. [Suspect]
     Active Substance: EZETIMIBE
     Indication: TYPE IIA HYPERLIPIDAEMIA
     Dosage: 10 MG, UNK
     Route: 065
     Dates: start: 2018, end: 20191211
  4. ROSUVASTATIN. [Suspect]
     Active Substance: ROSUVASTATIN
     Indication: TYPE IIA HYPERLIPIDAEMIA
  5. ROSUVASTATIN. [Suspect]
     Active Substance: ROSUVASTATIN
     Indication: LIPID METABOLISM DISORDER
     Dosage: 20 MG, UNK
     Route: 065
     Dates: start: 2017, end: 2018

REACTIONS (15)
  - Mucosal inflammation [Recovered/Resolved with Sequelae]
  - Condition aggravated [Unknown]
  - Peripheral swelling [Recovered/Resolved with Sequelae]
  - Headache [Recovered/Resolved with Sequelae]
  - Ocular hyperaemia [Unknown]
  - Dyspnoea [Recovered/Resolved with Sequelae]
  - Hypertension [Unknown]
  - Lymphoedema [Unknown]
  - Oedema [Recovered/Resolved with Sequelae]
  - Musculoskeletal pain [Recovered/Resolved with Sequelae]
  - Polyneuropathy [Unknown]
  - Malaise [Unknown]
  - Obesity [Recovered/Resolved with Sequelae]
  - Nasopharyngitis [Recovered/Resolved with Sequelae]
  - Diarrhoea [Recovered/Resolved with Sequelae]
